FAERS Safety Report 5093470-X (Version None)
Quarter: 2006Q3

REPORT INFORMATION
  Report Type: 
  Country: None (occurrence: None)
  Receive Date: 20060829
  Receipt Date: 20041129
  Transmission Date: 20061208
  Serious: Yes (Life-Threatening, Hospitalization)
  Sender: FDA-Public Use
  Company Number: 20042094

PATIENT
  Sex: Male

DRUGS (1)
  1. LIORESAL [Suspect]
     Indication: MUSCLE SPASTICITY
     Dosage: DAILY, INTRATHECAL
     Route: 037

REACTIONS (10)
  - AREFLEXIA [None]
  - BRAIN STEM SYNDROME [None]
  - DEVICE FAILURE [None]
  - DRUG WITHDRAWAL SYNDROME [None]
  - FIBROSIS [None]
  - HALLUCINATION [None]
  - HYPERTENSION [None]
  - MEDICAL DEVICE COMPLICATION [None]
  - RESPIRATORY ARREST [None]
  - SCAR [None]
